FAERS Safety Report 11656791 (Version 1)
Quarter: 2015Q4

REPORT INFORMATION
  Report Type: Spontaneous
  Country: US (occurrence: US)
  Receive Date: 20151023
  Receipt Date: 20151023
  Transmission Date: 20160304
  Serious: Yes (Death, Other)
  Sender: FDA-Public Use
  Company Number: US-ACTAVIS-2015-22971

PATIENT
  Age: 19 Year
  Sex: Male

DRUGS (11)
  1. LINEZOLID (UNKNOWN) [Suspect]
     Active Substance: LINEZOLID
     Dosage: UNK
     Route: 065
  2. GENTAMICIN SULFATE (UNKNOWN) [Suspect]
     Active Substance: GENTAMICIN SULFATE
     Indication: ENTEROCOCCAL INFECTION
     Dosage: 3 MG/KG, DAILY
     Route: 065
  3. LINEZOLID (UNKNOWN) [Suspect]
     Active Substance: LINEZOLID
     Indication: ENTEROCOCCAL INFECTION
     Dosage: UNK
     Route: 065
  4. TIGECYCLINE. [Suspect]
     Active Substance: TIGECYCLINE
     Indication: ENTEROCOCCAL INFECTION
     Dosage: UNK
     Route: 065
  5. TIGECYCLINE. [Suspect]
     Active Substance: TIGECYCLINE
     Dosage: UNK
     Route: 065
  6. DALFOPRISTIN W/QUINUPRISTIN [Suspect]
     Active Substance: DALFOPRISTIN\QUINUPRISTIN
     Indication: ENTEROCOCCAL INFECTION
     Dosage: UNK
     Route: 065
  7. TIGECYCLINE. [Suspect]
     Active Substance: TIGECYCLINE
     Dosage: UNK
     Route: 065
  8. DAPTOMYCIN. [Suspect]
     Active Substance: DAPTOMYCIN
     Indication: ENTEROCOCCAL INFECTION
     Dosage: 8 MG/KG, DAILY
     Route: 065
  9. DAPTOMYCIN. [Suspect]
     Active Substance: DAPTOMYCIN
     Dosage: 10 MG/KG, DAILY
     Route: 065
  10. AMPICILLIN SODIUM (WATSON LABORATORIES) [Suspect]
     Active Substance: AMPICILLIN SODIUM
     Indication: ENTEROCOCCAL INFECTION
     Dosage: UNK
     Route: 065
  11. DALFOPRISTIN W/QUINUPRISTIN [Suspect]
     Active Substance: DALFOPRISTIN\QUINUPRISTIN
     Dosage: UNK
     Route: 065

REACTIONS (4)
  - Pathogen resistance [Unknown]
  - Drug ineffective [Unknown]
  - Candida infection [Fatal]
  - Pneumonia fungal [Fatal]
